FAERS Safety Report 6651938-6 (Version None)
Quarter: 2010Q1

REPORT INFORMATION
  Report Type: 
  Country: None (occurrence: None)
  Receive Date: 20100325
  Receipt Date: 20100319
  Transmission Date: 20100710
  Serious: Yes (Other)
  Sender: FDA-Public Use
  Company Number: PHHY2010US17745

PATIENT

DRUGS (1)
  1. STALEVO 100 [Suspect]

REACTIONS (1)
  - WEIGHT DECREASED [None]
